FAERS Safety Report 24545894 (Version 5)
Quarter: 2025Q2

REPORT INFORMATION
  Report Type: Spontaneous
  Country: US (occurrence: US)
  Receive Date: 20241024
  Receipt Date: 20250528
  Transmission Date: 20250716
  Serious: No
  Sender: VERTEX
  Company Number: US-VERTEX PHARMACEUTICALS-2024-016399

PATIENT
  Sex: Female

DRUGS (17)
  1. TRIKAFTA [Suspect]
     Active Substance: ELEXACAFTOR\IVACAFTOR\TEZACAFTOR
     Indication: Cystic fibrosis
     Dosage: 2 ORANGE TABS AT NIGHT AND 1 BLUE TABLET IN THE MORNING
     Route: 048
     Dates: start: 20240109
  2. AZTREONAM LYSINE [Suspect]
     Active Substance: AZTREONAM LYSINE
     Indication: Cystic fibrosis
     Dosage: 75 MG; 28 DAYS ON AND 28 DAYS OFF
     Dates: start: 20230502
  3. VITAMIN B12 [Concomitant]
     Active Substance: CYANOCOBALAMIN
  4. BIOTIN [Concomitant]
     Active Substance: BIOTIN
  5. BUDESONIDE [Concomitant]
     Active Substance: BUDESONIDE
  6. CALCITRIOL [Concomitant]
     Active Substance: CALCITRIOL
  7. CALCIUM [Concomitant]
     Active Substance: CALCIUM
  8. CREON [Concomitant]
     Active Substance: PANCRELIPASE AMYLASE\PANCRELIPASE LIPASE\PANCRELIPASE PROTEASE
  9. DEKAS ESSENTIAL [Concomitant]
  10. HUMALOG [Concomitant]
     Active Substance: INSULIN LISPRO
  11. SODIUM CHLORIDE [Concomitant]
     Active Substance: SODIUM CHLORIDE
     Route: 055
  12. LANTUS [Concomitant]
     Active Substance: INSULIN GLARGINE
  13. RAMIPRIL [Concomitant]
     Active Substance: RAMIPRIL
  14. VITAMIN C [Concomitant]
     Active Substance: ASCORBIC ACID
  15. DEXCON [Concomitant]
  16. CAYSTON [Concomitant]
     Active Substance: AZTREONAM
  17. MINERALS\VITAMINS [Concomitant]
     Active Substance: MINERALS\VITAMINS

REACTIONS (13)
  - Increased viscosity of bronchial secretion [Unknown]
  - Cough [Unknown]
  - Candida infection [Unknown]
  - Gastrointestinal disorder [Unknown]
  - Respiratory symptom [Unknown]
  - Sleep disorder [Not Recovered/Not Resolved]
  - Anxiety [Not Recovered/Not Resolved]
  - Oropharyngeal pain [Not Recovered/Not Resolved]
  - Fatigue [Not Recovered/Not Resolved]
  - Loss of personal independence in daily activities [Recovered/Resolved]
  - Disturbance in social behaviour [Recovered/Resolved]
  - Nasal inflammation [Unknown]
  - Nasopharyngitis [Unknown]

NARRATIVE: CASE EVENT DATE: 20240101
